FAERS Safety Report 11510165 (Version 1)
Quarter: 2015Q3

REPORT INFORMATION
  Report Type: Spontaneous
  Country: US (occurrence: US)
  Receive Date: 20150915
  Receipt Date: 20150915
  Transmission Date: 20151125
  Serious: No
  Sender: FDA-Public Use
  Company Number: US-JNJFOC-20150620630

PATIENT
  Age: 87 Year
  Sex: Female
  Weight: 67.59 kg

DRUGS (1)
  1. TYLENOL ARTHRITIS PAIN [Suspect]
     Active Substance: ACETAMINOPHEN
     Indication: BACK PAIN
     Dosage: IN THE MORNING
     Route: 048
     Dates: start: 20150625, end: 20150625

REACTIONS (1)
  - Expired product administered [Unknown]
